FAERS Safety Report 5547328-X (Version None)
Quarter: 2007Q4

REPORT INFORMATION
  Report Type: 
  Country: None (occurrence: None)
  Receive Date: 20071206
  Receipt Date: 20071120
  Transmission Date: 20080405
  Serious: Yes (Hospitalization)
  Sender: FDA-Public Use
  Company Number: 8027985

PATIENT
  Age: 46 Year
  Sex: Male
  Weight: 61.1 kg

DRUGS (2)
  1. PREDNISOLONE [Suspect]
     Indication: SYSTEMIC LUPUS ERYTHEMATOSUS
     Dosage: 40 MG/D
  2. PREDNISOLONE [Suspect]
     Indication: SYSTEMIC LUPUS ERYTHEMATOSUS
     Dosage: 30 MG /D

REACTIONS (4)
  - HAEMATOCRIT DECREASED [None]
  - IMMUNOSUPPRESSION [None]
  - NOCARDIOSIS [None]
  - OPPORTUNISTIC INFECTION [None]
